FAERS Safety Report 14072233 (Version 2)
Quarter: 2018Q1

REPORT INFORMATION
  Report Type: Spontaneous
  Country: US (occurrence: US)
  Receive Date: 20171010
  Receipt Date: 20180105
  Transmission Date: 20180508
  Serious: No
  Sender: FDA-Public Use
  Company Number: US-SA-2017SA176524

PATIENT
  Age: 33 Year
  Sex: Female

DRUGS (7)
  1. ADVAIR HFA [Concomitant]
     Active Substance: FLUTICASONE PROPIONATE\SALMETEROL XINAFOATE
     Route: 065
  2. DUPIXENT [Suspect]
     Active Substance: DUPILUMAB
     Indication: PSORIASIS
     Route: 058
     Dates: start: 20170820
  3. MONTELUKAST [Concomitant]
     Active Substance: MONTELUKAST SODIUM
     Dosage: STRENGTH: 10 MG
     Route: 065
  4. DUPIXENT [Suspect]
     Active Substance: DUPILUMAB
     Indication: PSORIASIS
     Route: 058
     Dates: start: 20170820
  5. DUPIXENT [Suspect]
     Active Substance: DUPILUMAB
     Indication: PSORIASIS
     Route: 058
     Dates: start: 20170820
  6. DUPIXENT [Suspect]
     Active Substance: DUPILUMAB
     Indication: PSORIASIS
     Route: 058
  7. DUPIXENT [Suspect]
     Active Substance: DUPILUMAB
     Indication: PSORIASIS
     Route: 058

REACTIONS (11)
  - Dry skin [Not Recovered/Not Resolved]
  - Rash [Not Recovered/Not Resolved]
  - Disease recurrence [Unknown]
  - Product use in unapproved indication [Unknown]
  - Headache [Unknown]
  - Drug dose omission [Unknown]
  - Influenza like illness [Unknown]
  - Eye swelling [Not Recovered/Not Resolved]
  - Rash [Unknown]
  - Ocular discomfort [Not Recovered/Not Resolved]
  - Infection [Unknown]

NARRATIVE: CASE EVENT DATE: 20170901
